FAERS Safety Report 18129193 (Version 3)
Quarter: 2023Q1

REPORT INFORMATION
  Report Type: Spontaneous
  Country: FR (occurrence: FR)
  Receive Date: 20200810
  Receipt Date: 20230224
  Transmission Date: 20230418
  Serious: Yes (Life-Threatening, Hospitalization)
  Sender: FDA-Public Use
  Company Number: None

PATIENT
  Age: 70 Year
  Sex: Male
  Weight: 82 kg

DRUGS (8)
  1. FLUOROURACIL [Suspect]
     Active Substance: FLUOROURACIL
     Indication: Rectal adenocarcinoma
     Dosage: STRENGTH-50 MG/ML
     Route: 042
     Dates: start: 20200504
  2. ONDANSETRON [Suspect]
     Active Substance: ONDANSETRON
     Indication: Prophylaxis of nausea and vomiting
     Route: 042
     Dates: start: 20200727
  3. OXALIPLATIN [Suspect]
     Active Substance: OXALIPLATIN
     Indication: Rectal adenocarcinoma
     Route: 042
     Dates: start: 20200504
  4. LEVOLEUCOVORIN CALCIUM [Suspect]
     Active Substance: LEVOLEUCOVORIN CALCIUM
     Indication: Rectal adenocarcinoma
     Route: 042
     Dates: start: 20200504
  5. SOLU-MEDROL [Suspect]
     Active Substance: METHYLPREDNISOLONE SODIUM SUCCINATE
     Indication: Prophylaxis of nausea and vomiting
     Dosage: STRENGTH-120 MG/2 ML,LYOPHILISATE AND SOLUTION FOR PARENTERAL USE
     Route: 042
     Dates: start: 20200727
  6. VECTIBIX [Suspect]
     Active Substance: PANITUMUMAB
     Indication: Rectal adenocarcinoma
     Dosage: STRENGTH-20 MG/ML,DURING THE SIXTH CYCLE
     Route: 042
     Dates: start: 20200727
  7. PANTOPRAZOLE [Concomitant]
     Active Substance: PANTOPRAZOLE
     Indication: Gastrooesophageal reflux disease
     Dosage: STRENGTH-40 MG, ONCE A DAY
     Route: 048
  8. GAVISCON [Concomitant]
     Active Substance: ALUMINUM HYDROXIDE\MAGNESIUM CARBONATE
     Indication: Gastrooesophageal reflux disease
     Dosage: THREE TIMES A DAY
     Route: 048

REACTIONS (1)
  - Anaphylactoid reaction [Recovered/Resolved]

NARRATIVE: CASE EVENT DATE: 20200729
